FAERS Safety Report 5965121-0 (Version None)
Quarter: 2008Q4

REPORT INFORMATION
  Report Type: 
  Country: None (occurrence: None)
  Receive Date: 20081125
  Receipt Date: 20081114
  Transmission Date: 20090506
  Serious: Yes (Other)
  Sender: FDA-Public Use
  Company Number: JP-JNJFOC-20080704835

PATIENT
  Sex: Male
  Weight: 54 kg

DRUGS (45)
  1. REMICADE [Suspect]
     Route: 042
  2. REMICADE [Suspect]
     Route: 042
  3. REMICADE [Suspect]
     Route: 042
  4. REMICADE [Suspect]
     Route: 042
  5. REMICADE [Suspect]
     Route: 042
  6. REMICADE [Suspect]
     Route: 042
  7. REMICADE [Suspect]
     Route: 042
  8. REMICADE [Suspect]
     Route: 042
  9. REMICADE [Suspect]
     Route: 042
  10. REMICADE [Suspect]
     Indication: BEHCET'S SYNDROME
     Route: 042
  11. NEORAL [Concomitant]
     Route: 048
  12. NEORAL [Concomitant]
     Route: 048
  13. NEORAL [Concomitant]
     Route: 048
  14. NEORAL [Concomitant]
     Route: 048
  15. NEORAL [Concomitant]
     Route: 048
  16. NEORAL [Concomitant]
     Route: 048
  17. NEORAL [Concomitant]
     Indication: BEHCET'S SYNDROME
     Route: 048
  18. PREDNISOLONE [Concomitant]
     Route: 048
  19. PREDNISOLONE [Concomitant]
     Route: 048
  20. PREDNISOLONE [Concomitant]
     Route: 048
  21. PREDNISOLONE [Concomitant]
     Route: 048
  22. PREDNISOLONE [Concomitant]
     Route: 048
  23. PREDNISOLONE [Concomitant]
     Route: 048
  24. PREDNISOLONE [Concomitant]
     Indication: BEHCET'S SYNDROME
     Route: 048
  25. CELESTAMINE TAB [Concomitant]
     Dosage: PRIOR TO EVERY INFLIXIMAB INFUSION
     Route: 048
  26. CELESTAMINE TAB [Concomitant]
     Dosage: PRIOR TO EVERY INFLIXIMAB INFUSION
     Route: 048
  27. CELESTAMINE TAB [Concomitant]
     Dosage: PRIOR TO EVERY INFLIXIMAB INFUSION
     Route: 048
  28. CELESTAMINE TAB [Concomitant]
     Dosage: PRIOR TO EVERY INFLIXIMAB INFUSION
     Route: 048
  29. CELESTAMINE TAB [Concomitant]
     Dosage: PRIOR TO EVERY INFLIXIMAB INFUSION
     Route: 048
  30. CELESTAMINE TAB [Concomitant]
     Dosage: PRIOR TO EVERY INFLIXIMAB INFUSION
     Route: 048
  31. CELESTAMINE TAB [Concomitant]
     Dosage: PRIOR TO EVERY INFLIXIMAB INFUSION
     Route: 048
  32. CELESTAMINE TAB [Concomitant]
     Dosage: PRIOR TO EVERY INFLIXIMAB INFUSION
     Route: 048
  33. CELESTAMINE TAB [Concomitant]
     Dosage: PRIOR TO EVERY INFLIXIMAB INFUSION
     Route: 048
  34. CELESTAMINE TAB [Concomitant]
     Indication: PROPHYLAXIS
     Dosage: PRIOR TO EVERY INFLIXIMAB INFUSION
     Route: 048
  35. LOXONIN [Concomitant]
     Dosage: PRIOR TO EVERY INFLIXIMAB INFUSION
     Route: 048
  36. LOXONIN [Concomitant]
     Dosage: PRIOR TO EVERY INFLIXIMAB INFUSION
     Route: 048
  37. LOXONIN [Concomitant]
     Dosage: PRIOR TO EVERY INFLIXIMAB INFUSION
     Route: 048
  38. LOXONIN [Concomitant]
     Dosage: PRIOR TO EVERY INFLIXIMAB INFUSION
     Route: 048
  39. LOXONIN [Concomitant]
     Dosage: PRIOR TO EVERY INFLIXIMAB INFUSION
     Route: 048
  40. LOXONIN [Concomitant]
     Dosage: PRIOR TO EVERY INFLIXIMAB INFUSION
     Route: 048
  41. LOXONIN [Concomitant]
     Dosage: PRIOR TO EVERY INFLIXIMAB INFUSION
     Route: 048
  42. LOXONIN [Concomitant]
     Dosage: PRIOR TO EVERY INFLIXIMAB INFUSION
     Route: 048
  43. LOXONIN [Concomitant]
     Dosage: PRIOR TO EVERY INFLIXIMAB INFUSION
     Route: 048
  44. LOXONIN [Concomitant]
     Indication: PROPHYLAXIS
     Dosage: PRIOR TO EVERY INFLIXIMAB INFUSION
     Route: 048
  45. ISCOTIN [Concomitant]
     Indication: ANTIBIOTIC PROPHYLAXIS
     Route: 048

REACTIONS (2)
  - SINUSITIS [None]
  - UVEITIS [None]
